FAERS Safety Report 24120672 (Version 1)
Quarter: 2024Q3

REPORT INFORMATION
  Report Type: Spontaneous
  Country: EE (occurrence: EE)
  Receive Date: 20240722
  Receipt Date: 20240722
  Transmission Date: 20241017
  Serious: Yes (Life-Threatening, Other)
  Sender: GLAXOSMITHKLINE
  Company Number: None

PATIENT

DRUGS (4)
  1. VALTREX [Suspect]
     Active Substance: VALACYCLOVIR HYDROCHLORIDE
     Indication: Herpes zoster
     Dosage: 1 G, TID
     Route: 048
     Dates: start: 20240625, end: 20240626
  2. PREGABALIN [Suspect]
     Active Substance: PREGABALIN
     Indication: Pain
     Dosage: 150 MG, BID
     Route: 048
     Dates: start: 20240625, end: 20240626
  3. ACETAMINOPHEN [Suspect]
     Active Substance: ACETAMINOPHEN
     Indication: Pain
     Dosage: 1 G, BID
     Route: 042
     Dates: start: 20240625, end: 20240626
  4. UNASYN [Concomitant]
     Active Substance: AMPICILLIN SODIUM\SULBACTAM SODIUM
     Indication: Skin infection
     Dosage: UNK UNK, QID
     Route: 042
     Dates: start: 20240626, end: 20240626

REACTIONS (4)
  - Acute kidney injury [Not Recovered/Not Resolved]
  - Loss of consciousness [Not Recovered/Not Resolved]
  - Coma [Not Recovered/Not Resolved]
  - Tonic convulsion [Not Recovered/Not Resolved]

NARRATIVE: CASE EVENT DATE: 20240626
